FAERS Safety Report 14379252 (Version 2)
Quarter: 2018Q1

REPORT INFORMATION
  Report Type: Spontaneous
  Country: FR (occurrence: FR)
  Receive Date: 20180112
  Receipt Date: 20180308
  Transmission Date: 20180509
  Serious: Yes (Disabling, Other)
  Sender: FDA-Public Use
  Company Number: FR-BRISTOL-MYERS SQUIBB COMPANY-BMS-2018-000610

PATIENT
  Age: 64 Year
  Sex: Female
  Weight: 78 kg

DRUGS (4)
  1. KARDEGIC [Concomitant]
     Active Substance: ASPIRIN DL-LYSINE
     Indication: THROMBOCYTOPENIA
     Dosage: 1 UNIT, QD
     Route: 048
     Dates: start: 201702
  2. HYDREA [Suspect]
     Active Substance: HYDROXYUREA
     Indication: PRODUCT USED FOR UNKNOWN INDICATION
     Dosage: 1 DF, UNK
     Route: 065
  3. HYDREA [Suspect]
     Active Substance: HYDROXYUREA
     Indication: ESSENTIAL THROMBOCYTHAEMIA
     Dosage: 500 MG, UNK
     Route: 065
     Dates: start: 201702
  4. ALLOPURINOL. [Concomitant]
     Active Substance: ALLOPURINOL
     Indication: THROMBOCYTOPENIA
     Dosage: 1 UNK, UNK
     Route: 065
     Dates: start: 201702

REACTIONS (6)
  - Blood urea increased [Unknown]
  - Insomnia [Recovered/Resolved]
  - Heart rate increased [Recovered/Resolved]
  - Emotional distress [Recovered/Resolved]
  - Arrhythmia [Unknown]
  - Off label use [Unknown]

NARRATIVE: CASE EVENT DATE: 201706
